FAERS Safety Report 5709822-8 (Version None)
Quarter: 2008Q2

REPORT INFORMATION
  Report Type: 
  Country: None (occurrence: None)
  Receive Date: 20080418
  Receipt Date: 20080410
  Transmission Date: 20081010
  Serious: Yes (Hospitalization)
  Sender: FDA-Public Use
  Company Number: US-ASTRAZENECA-2008UW07343

PATIENT
  Age: 68 Year
  Sex: Female
  Weight: 67.1 kg

DRUGS (3)
  1. CRESTOR [Suspect]
     Indication: HYPERCHOLESTEROLAEMIA
     Route: 048
     Dates: start: 20050101
  2. SYNTHROID [Concomitant]
  3. NORVASC [Concomitant]

REACTIONS (3)
  - BACK PAIN [None]
  - CHEST PAIN [None]
  - PNEUMONIA [None]
